FAERS Safety Report 8808986 (Version 1)
Quarter: 2012Q4

REPORT INFORMATION
  Report Type: Spontaneous
  Country: US (occurrence: None)
  Receive Date: 20120921
  Receipt Date: 20120921
  Transmission Date: 20130627
  Serious: Yes (Hospitalization, Disabling)
  Sender: FDA-Public Use
  Company Number: None

PATIENT
  Age: 73 Year
  Sex: Male
  Weight: 64.41 kg

DRUGS (1)
  1. VENLAFAXINE [Suspect]
     Indication: DEPRESSION
     Route: 048
     Dates: start: 20120412, end: 20120422

REACTIONS (11)
  - Delusion [None]
  - Photosensitivity reaction [None]
  - Gait disturbance [None]
  - Urinary incontinence [None]
  - Confusional state [None]
  - Abulia [None]
  - Catatonia [None]
  - Memory impairment [None]
  - Walking aid user [None]
  - Gross motor delay [None]
  - Fine motor delay [None]
